FAERS Safety Report 12184288 (Version 1)
Quarter: 2016Q1

REPORT INFORMATION
  Report Type: Spontaneous
  Country: US (occurrence: US)
  Receive Date: 20160316
  Receipt Date: 20160316
  Transmission Date: 20160526
  Serious: No
  Sender: FDA-Public Use
  Company Number: US-JNJFOC-20160304096

PATIENT
  Age: 55 Year
  Sex: Female
  Weight: 71.67 kg

DRUGS (3)
  1. DOXYCYCLINE. [Concomitant]
     Active Substance: DOXYCYCLINE
     Indication: STAPHYLOCOCCAL INFECTION
     Route: 065
     Dates: start: 2009
  2. BACTRIM [Concomitant]
     Active Substance: SULFAMETHOXAZOLE\TRIMETHOPRIM
     Indication: ESCHERICHIA INFECTION
     Route: 065
     Dates: start: 2009
  3. SPORANOX [Suspect]
     Active Substance: ITRACONAZOLE
     Indication: SKIN INFECTION
     Dosage: PULSE DOSING UP TO 400MG DAILY
     Route: 048
     Dates: start: 20160203

REACTIONS (1)
  - Incorrect dosage administered [Unknown]

NARRATIVE: CASE EVENT DATE: 201602
